FAERS Safety Report 21254432 (Version 1)
Quarter: 2022Q3

REPORT INFORMATION
  Report Type: Spontaneous
  Country: CN (occurrence: CN)
  Receive Date: 20220825
  Receipt Date: 20220825
  Transmission Date: 20221026
  Serious: Yes (Other)
  Sender: FDA-Public Use
  Company Number: None

PATIENT
  Age: 9 Year
  Sex: Male
  Weight: 25.5 kg

DRUGS (6)
  1. CYCLOPHOSPHAMIDE [Suspect]
     Active Substance: CYCLOPHOSPHAMIDE
     Indication: Thalassaemia beta
     Dosage: 1500 MG, QD, INTRA-PUMP INJECTION, DILUTED WIH 0.9% SODIUM CHLORIDE INJECTION
     Route: 050
     Dates: start: 20220722, end: 20220724
  2. SODIUM CHLORIDE [Suspect]
     Active Substance: SODIUM CHLORIDE
     Indication: Medication dilution
     Dosage: 250 ML, QD, INTRA-PUMP INJECTION, DILUTED WITH CYCLOPHOSPHAMIDE
     Route: 050
     Dates: start: 20220722, end: 20220724
  3. SODIUM CHLORIDE [Suspect]
     Active Substance: SODIUM CHLORIDE
     Dosage: 100 ML, QD, INTRA-PUMP INJECTION, DILUTED WITH FLUDARABINE PHOSPHATE
     Route: 050
     Dates: start: 20220724, end: 20220729
  4. FLUDARABINE PHOSPHATE [Suspect]
     Active Substance: FLUDARABINE PHOSPHATE
     Indication: Thalassaemia beta
     Dosage: 38.6 MG, QD, INTRA-PUMP INJECTION DILUTED WITH 0.9% SODIUM CHLORIDE
     Route: 050
     Dates: start: 20220724, end: 20220729
  5. BUSULFAN [Suspect]
     Active Substance: BUSULFAN
     Indication: Thalassaemia beta
     Dosage: 24.7 MG, QD, INTRA-PUMP INJECTION
     Route: 050
     Dates: start: 20220724, end: 20220724
  6. THIOTEPA [Suspect]
     Active Substance: THIOTEPA
     Indication: Thalassaemia beta
     Dosage: 260 MG, QD
     Route: 041
     Dates: start: 20220722

REACTIONS (1)
  - Myelosuppression [Recovering/Resolving]

NARRATIVE: CASE EVENT DATE: 20220801
